FAERS Safety Report 21040419 (Version 1)
Quarter: 2022Q3

REPORT INFORMATION
  Report Type: Spontaneous
  Country: CN (occurrence: CN)
  Receive Date: 20220704
  Receipt Date: 20220704
  Transmission Date: 20221026
  Serious: Yes (Other)
  Sender: FDA-Public Use
  Company Number: CN-PFIZER INC-PV202200013248

PATIENT
  Age: 73 Year
  Sex: Female
  Weight: 70 kg

DRUGS (1)
  1. CELEBREX [Suspect]
     Active Substance: CELECOXIB
     Indication: Fracture pain
     Dosage: 0.2 G, 2X/DAY
     Route: 048
     Dates: start: 20220616, end: 20220621

REACTIONS (4)
  - Rash maculo-papular [Recovering/Resolving]
  - Herpes virus infection [Recovering/Resolving]
  - Pemphigus [Recovering/Resolving]
  - Off label use [Unknown]

NARRATIVE: CASE EVENT DATE: 20220616
